FAERS Safety Report 10483705 (Version 1)
Quarter: 2014Q3

REPORT INFORMATION
  Report Type: Spontaneous
  Country: US (occurrence: None)
  Receive Date: 20140929
  Receipt Date: 20140929
  Transmission Date: 20150326
  Serious: Yes (Other)
  Sender: FDA-Public Use
  Company Number: None

PATIENT
  Age: 26 Year
  Sex: Female
  Weight: 64.41 kg

DRUGS (1)
  1. BUPROPION SR 150MG [Suspect]
     Active Substance: BUPROPION
     Indication: SEASONAL AFFECTIVE DISORDER
     Dosage: 1 PILL, TWICE DAILY, TAKEN BY MOUTH
     Route: 048
     Dates: start: 20140909, end: 20140922

REACTIONS (9)
  - Nervousness [None]
  - Emotional distress [None]
  - Depression [None]
  - Self-injurious ideation [None]
  - Product substitution issue [None]
  - Thinking abnormal [None]
  - Product quality issue [None]
  - Anxiety [None]
  - Bruxism [None]

NARRATIVE: CASE EVENT DATE: 20140921
